FAERS Safety Report 13046278 (Version 1)
Quarter: 2016Q4

REPORT INFORMATION
  Report Type: Spontaneous
  Country: US (occurrence: US)
  Receive Date: 20161220
  Receipt Date: 20161220
  Transmission Date: 20170207
  Serious: No
  Sender: FDA-Public Use
  Company Number: US-GLAXOSMITHKLINE-US2016187089

PATIENT
  Sex: Female

DRUGS (6)
  1. LANTUS [Concomitant]
     Active Substance: INSULIN GLARGINE
  2. TANZEUM [Suspect]
     Active Substance: ALBIGLUTIDE
     Indication: WEIGHT DECREASED
     Dosage: 30 MG, WE
     Route: 058
     Dates: start: 201509
  3. TANZEUM [Suspect]
     Active Substance: ALBIGLUTIDE
     Dosage: 50 UNK, UNK
     Route: 042
  4. GLUCOPHAGE [Concomitant]
     Active Substance: METFORMIN HYDROCHLORIDE
  5. LISINOPRIL. [Concomitant]
     Active Substance: LISINOPRIL
  6. CRESTOR [Concomitant]
     Active Substance: ROSUVASTATIN CALCIUM

REACTIONS (3)
  - Weight decreased [Unknown]
  - Therapeutic response unexpected [Unknown]
  - Off label use [Unknown]
